FAERS Safety Report 7769970-8 (Version None)
Quarter: 2011Q3

REPORT INFORMATION
  Report Type: 
  Country: None (occurrence: None)
  Receive Date: 20110922
  Receipt Date: 20110919
  Transmission Date: 20111222
  Serious: Yes (Other)
  Sender: FDA-Public Use
  Company Number: GB-GLAXOSMITHKLINE-B0748324A

PATIENT
  Age: 28 Year
  Sex: Female

DRUGS (1)
  1. MALARONE [Suspect]

REACTIONS (1)
  - SOMNAMBULISM [None]
